FAERS Safety Report 6505494-3 (Version None)
Quarter: 2009Q4

REPORT INFORMATION
  Report Type: 
  Country: None (occurrence: None)
  Receive Date: 20091218
  Receipt Date: 20091208
  Transmission Date: 20100525
  Serious: Yes (Hospitalization)
  Sender: FDA-Public Use
  Company Number: US-PFIZER INC-2009307873

PATIENT
  Age: 51 Year
  Sex: Female
  Weight: 81.646 kg

DRUGS (1)
  1. CELEBREX [Suspect]
     Indication: ARTHRITIS
     Route: 048
     Dates: start: 20080101, end: 20091207

REACTIONS (4)
  - DYSPHAGIA [None]
  - LIP SWELLING [None]
  - OEDEMA [None]
  - RASH [None]
